FAERS Safety Report 15841989 (Version 2)
Quarter: 2019Q1

REPORT INFORMATION
  Report Type: Spontaneous
  Country: BR (occurrence: BR)
  Receive Date: 20190118
  Receipt Date: 20190207
  Transmission Date: 20190417
  Serious: Yes (Hospitalization)
  Sender: FDA-Public Use
  Company Number: BR-GLAXOSMITHKLINE-BR2019GSK006653

PATIENT
  Age: 2 Year
  Sex: Male

DRUGS (4)
  1. FLORALYTE [Concomitant]
     Indication: PRODUCT USED FOR UNKNOWN INDICATION
     Dosage: 150 ML, QID
     Route: 048
  2. HIXIZINE [Concomitant]
     Active Substance: HYDROXYZINE HYDROCHLORIDE
     Indication: PRODUCT USED FOR UNKNOWN INDICATION
     Dosage: 2.5 ML, QID
     Route: 048
  3. NOVALGINA [Concomitant]
     Active Substance: METAMIZOLE SODIUM
     Indication: PRODUCT USED FOR UNKNOWN INDICATION
     Dosage: 5 ML, QID
     Route: 048
  4. ZINNAT [Suspect]
     Active Substance: CEFUROXIME AXETIL
     Indication: INFECTION
     Dosage: 5 ML, QD
     Route: 048

REACTIONS (3)
  - Infection [Unknown]
  - Product complaint [Unknown]
  - Drug ineffective [Unknown]
